FAERS Safety Report 23127994 (Version 2)
Quarter: 2023Q4

REPORT INFORMATION
  Report Type: Report from Study
  Country: BE (occurrence: BE)
  Receive Date: 20231031
  Receipt Date: 20231121
  Transmission Date: 20240109
  Serious: Yes (Hospitalization, Other)
  Sender: FDA-Public Use
  Company Number: BE-ABBVIE-5469238

PATIENT
  Age: 79 Year
  Sex: Female

DRUGS (5)
  1. CARBIDOPA\LEVODOPA [Suspect]
     Active Substance: CARBIDOPA\LEVODOPA
     Indication: Parkinson^s disease
     Dosage: MD: 7.0 ML, CD: 2.7 ML/H, ED: 2.5 ML, CND: 1.6 ML/H REMAINS AT 24 HOURS
     Route: 050
     Dates: start: 20230502, end: 20230505
  2. CARBIDOPA\LEVODOPA [Suspect]
     Active Substance: CARBIDOPA\LEVODOPA
     Dosage: MD: 7.0 ML, CD: 2.7 ML/H, ED: 2.2 ML, CND: 0.7 ML/H REMAINS AT 24 HOURS
     Route: 050
     Dates: start: 20230510, end: 20230724
  3. CARBIDOPA\LEVODOPA [Suspect]
     Active Substance: CARBIDOPA\LEVODOPA
     Dosage: MD: 7.0 ML, CD: 2.7 ML/H, ED: 2.5 ML, CND: 0.6 ML/H REMAINS AT 24 HOURS
     Route: 050
     Dates: start: 20230505, end: 20230510
  4. CARBIDOPA\LEVODOPA [Suspect]
     Active Substance: CARBIDOPA\LEVODOPA
     Dosage: MD: 7.0 ML, CD: 3.0 ML/H, ED: 2.5 ML, CND: 1.9 ML/H REMAINS AT 24 HOURS
     Route: 050
     Dates: start: 20230922
  5. CARBIDOPA\LEVODOPA [Suspect]
     Active Substance: CARBIDOPA\LEVODOPA
     Dosage: MD: 7.0 ML, CD: 2.8 ML/H, ED: 2.5 ML, CND: 1.8 ML/H REMAINS AT 24 HOURS
     Route: 050
     Dates: start: 20230724, end: 20230922

REACTIONS (3)
  - Fall [Unknown]
  - Clavicle fracture [Recovering/Resolving]
  - Subdural haematoma [Unknown]

NARRATIVE: CASE EVENT DATE: 20231025
